FAERS Safety Report 4358637-4 (Version None)
Quarter: 2004Q2

REPORT INFORMATION
  Report Type: 
  Country: None (occurrence: None)
  Receive Date: 20040507
  Receipt Date: 20040426
  Transmission Date: 20050107
  Serious: Yes (Other)
  Sender: FDA-Public Use
  Company Number: 200410210BCA

PATIENT
  Age: 43 Year
  Sex: Male

DRUGS (5)
  1. KOGENATE [Suspect]
     Indication: HAEMOPHILIA
     Dosage: SEE IMAGE
     Route: 042
     Dates: start: 19941217, end: 19941219
  2. KOGENATE [Suspect]
     Indication: HAEMOPHILIA
     Dosage: SEE IMAGE
     Route: 042
     Dates: start: 19941217, end: 19941219
  3. KOGENATE [Suspect]
  4. BLOOD TRANSFUSION (BLOOD TRANSFUSION, AUXILIARY PRODUCTS) [Suspect]
     Dosage: 1 U, INTRAVENOUS
     Route: 042
     Dates: start: 19690803
  5. HERCOPHIL (FACTOR VIII (ANTIHAEMOPHILIC FACTOR)) [Suspect]
     Dosage: 2 U, INTRAVENOUS
     Route: 042
     Dates: start: 19781010

REACTIONS (1)
  - HEPATITIS C POSITIVE [None]
